FAERS Safety Report 8537720-3 (Version None)
Quarter: 2012Q3

REPORT INFORMATION
  Report Type: 
  Country: None (occurrence: None)
  Receive Date: 20120725
  Receipt Date: 20120719
  Transmission Date: 20120928
  Serious: Yes (Other)
  Sender: FDA-Public Use
  Company Number: PHHY2012DK061995

PATIENT
  Age: 28 Year
  Sex: Male

DRUGS (1)
  1. VENLAFAXINE [Suspect]
     Indication: DEPRESSION
     Route: 048
     Dates: start: 20110101, end: 20120101

REACTIONS (3)
  - ANXIETY [None]
  - BONE MARROW FAILURE [None]
  - DEPRESSION [None]
